FAERS Safety Report 9246999 (Version 1)
Quarter: 2013Q2

REPORT INFORMATION
  Report Type: Spontaneous
  Country: FI (occurrence: FI)
  Receive Date: 20130422
  Receipt Date: 20130422
  Transmission Date: 20140414
  Serious: Yes (Other)
  Sender: FDA-Public Use
  Company Number: FI-AMGEN-FINSP2013026096

PATIENT
  Sex: Male

DRUGS (3)
  1. NPLATE [Suspect]
     Dosage: UNK
     Dates: start: 2012
  2. MAREVAN [Concomitant]
  3. IMMUNOGLOBULINS [Concomitant]

REACTIONS (2)
  - Therapeutic response decreased [Not Recovered/Not Resolved]
  - Platelet count decreased [Not Recovered/Not Resolved]
